FAERS Safety Report 18375983 (Version 1)
Quarter: 2020Q4

REPORT INFORMATION
  Report Type: Spontaneous
  Country: AU (occurrence: AU)
  Receive Date: 20201013
  Receipt Date: 20201013
  Transmission Date: 20210114
  Serious: Yes (Hospitalization)
  Sender: FDA-Public Use
  Company Number: AU-ACCORD-202340

PATIENT
  Age: 77 Year
  Sex: Male
  Weight: 78.6 kg

DRUGS (3)
  1. PALONOSETRON APOTEX [Concomitant]
     Indication: PREMEDICATION
     Dosage: STRENGTH 250 MCG/5 ML
     Route: 040
     Dates: start: 20200909, end: 20200909
  2. DEXAMETHASONE. [Concomitant]
     Active Substance: DEXAMETHASONE
     Indication: PREMEDICATION
     Route: 040
     Dates: start: 20200909, end: 20200909
  3. DOCETAXEL ACCORD [Suspect]
     Active Substance: DOCETAXEL
     Indication: PROSTATE CANCER
     Dosage: INJECTION, CONCENTRATED INFUSION, STRENGTH 80 MG/4ML
     Route: 042
     Dates: start: 20200819, end: 20200909

REACTIONS (3)
  - Emotional distress [Recovered/Resolved]
  - Aggression [Recovered/Resolved]
  - Flushing [Recovered/Resolved]

NARRATIVE: CASE EVENT DATE: 20200909
